FAERS Safety Report 4527403-9 (Version None)
Quarter: 2004Q4

REPORT INFORMATION
  Report Type: 
  Country: None (occurrence: None)
  Receive Date: 20041130
  Receipt Date: 20040901
  Transmission Date: 20050328
  Serious: No
  Sender: FDA-Public Use
  Company Number: WAES 0409USA00214

PATIENT
  Age: 66 Year
  Sex: Female

DRUGS (7)
  1. ZETIA [Suspect]
     Indication: BLOOD CHOLESTEROL INCREASED
     Dosage: 10 MG/DAILY/PO
     Route: 048
     Dates: start: 20040201
  2. PLAQUENIL [Concomitant]
  3. SYNTHROID [Concomitant]
  4. XALATAN [Concomitant]
  5. [THERAPY UNSPECIFIED] [Concomitant]
  6. ASPIRIN [Concomitant]
  7. PREDNISONE [Concomitant]

REACTIONS (2)
  - ABDOMINAL PAIN [None]
  - CONSTIPATION [None]
